FAERS Safety Report 18912915 (Version 1)
Quarter: 2021Q1

REPORT INFORMATION
  Report Type: Report from Study
  Country: BR (occurrence: BR)
  Receive Date: 20210219
  Receipt Date: 20210219
  Transmission Date: 20210420
  Serious: Yes (Death, Life-Threatening, Other)
  Sender: FDA-Public Use
  Company Number: BR-ASTRAZENECA-2021A034985

PATIENT
  Age: 66 Year
  Sex: Female

DRUGS (2)
  1. IRESSA [Suspect]
     Active Substance: GEFITINIB
     Indication: DISEASE PROGRESSION
     Route: 048
     Dates: start: 20210120
  2. UNSPECIFIED CHEMOTHERAPY [Concomitant]
     Active Substance: UNSPECIFIED INGREDIENT
     Route: 042

REACTIONS (6)
  - Death [Fatal]
  - Hypophagia [Unknown]
  - Dysphagia [Fatal]
  - Decreased appetite [Fatal]
  - Paresis [Fatal]
  - Pain [Fatal]

NARRATIVE: CASE EVENT DATE: 20210126
